FAERS Safety Report 10020124 (Version 1)
Quarter: 2014Q1

REPORT INFORMATION
  Report Type: Spontaneous
  Country: NL (occurrence: NL)
  Receive Date: 20140319
  Receipt Date: 20140319
  Transmission Date: 20141002
  Serious: Yes (Hospitalization)
  Sender: FDA-Public Use
  Company Number: NL-AMGEN-NLDSP2014018601

PATIENT
  Age: 53 Year
  Sex: Female

DRUGS (1)
  1. NEULASTA [Suspect]
     Indication: PROPHYLAXIS
     Dosage: NEULASTA INJVLST 10MG/ML WWSP 0,6ML, EVERY 3 WEEKS
     Route: 058
     Dates: start: 20131220

REACTIONS (1)
  - Investigation [Unknown]
